FAERS Safety Report 21316095 (Version 4)
Quarter: 2022Q4

REPORT INFORMATION
  Report Type: Spontaneous
  Country: DE (occurrence: DE)
  Receive Date: 20220910
  Receipt Date: 20221205
  Transmission Date: 20230113
  Serious: Yes (Hospitalization)
  Sender: FDA-Public Use
  Company Number: DE-SA-2022SA348860

PATIENT
  Age: 39 Year
  Sex: Male

DRUGS (5)
  1. DUPIXENT [Suspect]
     Active Substance: DUPILUMAB
     Indication: Neurodermatitis
     Dosage: 300 MG, QOW
     Route: 058
     Dates: start: 20210302, end: 20220703
  2. DUPIXENT [Suspect]
     Active Substance: DUPILUMAB
     Indication: Dermatitis atopic
  3. MOMETASONE [Concomitant]
     Active Substance: MOMETASONE
     Indication: Chronic sinusitis
     Dosage: 1 - 0 -1
     Route: 045
     Dates: start: 20211105
  4. PANTOPRAZOLE [Concomitant]
     Active Substance: PANTOPRAZOLE
     Indication: Leukoplakia
     Dosage: 1 ? 0 - 0
     Route: 048
     Dates: start: 20210713, end: 20220410
  5. ALBUTEROL [Concomitant]
     Active Substance: ALBUTEROL
     Dosage: AS NEEDED
     Dates: start: 2020

REACTIONS (3)
  - Anogenital warts [Recovered/Resolved]
  - Vocal cord leukoplakia [Recovered/Resolved]
  - Cranial operation [Recovered/Resolved]

NARRATIVE: CASE EVENT DATE: 20210623
